FAERS Safety Report 21858517 (Version 1)
Quarter: 2023Q1

REPORT INFORMATION
  Report Type: Spontaneous
  Country: US (occurrence: None)
  Receive Date: 20230113
  Receipt Date: 20230113
  Transmission Date: 20230418
  Serious: Yes (Other)
  Sender: FDA-Public Use
  Company Number: US-ROCHE-3260636

PATIENT
  Sex: Female
  Weight: 125.76 kg

DRUGS (4)
  1. OCREVUS [Suspect]
     Active Substance: OCRELIZUMAB
     Indication: Relapsing-remitting multiple sclerosis
     Dosage: YES
     Route: 042
     Dates: start: 201911
  2. METFORMIN [Concomitant]
     Active Substance: METFORMIN HYDROCHLORIDE
  3. PROVIGIL [Concomitant]
     Active Substance: MODAFINIL
  4. AMANTADINE [Concomitant]
     Active Substance: AMANTADINE

REACTIONS (2)
  - Thyroid cancer [Not Recovered/Not Resolved]
  - Obesity [Unknown]

NARRATIVE: CASE EVENT DATE: 20220812
